FAERS Safety Report 8333593-2 (Version None)
Quarter: 2012Q2

REPORT INFORMATION
  Report Type: 
  Country: None (occurrence: None)
  Receive Date: 20120503
  Receipt Date: 20110107
  Transmission Date: 20120825
  Serious: No
  Sender: FDA-Public Use
  Company Number: US-TEVA-2010006119

PATIENT
  Sex: Female
  Weight: 74.91 kg

DRUGS (2)
  1. NUVIGIL [Suspect]
     Dosage: 250 MILLIGRAM;
     Route: 048
  2. PROVIGIL [Suspect]
     Route: 048

REACTIONS (2)
  - MENTAL DISORDER [None]
  - ANXIETY [None]
